FAERS Safety Report 25650897 (Version 2)
Quarter: 2025Q4

REPORT INFORMATION
  Report Type: Spontaneous
  Country: US (occurrence: US)
  Receive Date: 20250806
  Receipt Date: 20251029
  Transmission Date: 20260117
  Serious: Yes (Hospitalization, Other)
  Sender: AMGEN
  Company Number: US-AMGEN-USASP2025153865

PATIENT
  Age: 48 Year
  Sex: Female

DRUGS (7)
  1. CORLANOR [Suspect]
     Active Substance: IVABRADINE HYDROCHLORIDE
     Indication: Atrioventricular block second degree
     Dosage: 5 MILLIGRAM, BID
     Route: 048
     Dates: start: 202206
  2. CORLANOR [Suspect]
     Active Substance: IVABRADINE HYDROCHLORIDE
     Indication: Supraventricular tachyarrhythmia
  3. CORLANOR [Suspect]
     Active Substance: IVABRADINE HYDROCHLORIDE
     Indication: Off label use
  4. CORLANOR [Suspect]
     Active Substance: IVABRADINE HYDROCHLORIDE
     Indication: Atrioventricular block second degree
  5. TOPAMAX [Concomitant]
     Active Substance: TOPIRAMATE
     Indication: Meningioma
     Dosage: 10 MILLIGRAM
     Route: 065
  6. TOPAMAX [Concomitant]
     Active Substance: TOPIRAMATE
     Indication: Headache
  7. TOPAMAX [Concomitant]
     Active Substance: TOPIRAMATE
     Indication: Pain

REACTIONS (13)
  - Renal perivascular epithelioid cell tumour [Not Recovered/Not Resolved]
  - Lymphangioleiomyomatosis [Unknown]
  - Arrhythmia [Unknown]
  - Tooth extraction [Not Recovered/Not Resolved]
  - Procedural pain [Not Recovered/Not Resolved]
  - Contraindicated product administered [Unknown]
  - Off label use [Unknown]
  - Blood cholesterol increased [Recovered/Resolved]
  - Hyperhidrosis [Recovered/Resolved]
  - Aspartate aminotransferase increased [Unknown]
  - Alanine aminotransferase increased [Unknown]
  - Heart rate decreased [Unknown]
  - Heart rate increased [Unknown]

NARRATIVE: CASE EVENT DATE: 20230601
